FAERS Safety Report 17005620 (Version 1)
Quarter: 2019Q4

REPORT INFORMATION
  Report Type: Spontaneous
  Country: US (occurrence: US)
  Receive Date: 20190926
  Receipt Date: 20190926
  Transmission Date: 20200122
  Serious: Yes (Other)
  Sender: FDA-Public Use
  Company Number: None

PATIENT
  Age: 17 Year
  Sex: Male
  Weight: 85.6 kg

DRUGS (6)
  1. DIPRIVAN [Suspect]
     Active Substance: PROPOFOL
     Indication: SEDATION
     Route: 042
     Dates: start: 20190520
  2. PROPOFOL 500MG INFUSED FROM 1019 - 1031 [Concomitant]
  3. DAUNORUBICIN 50MG IVPUSH AT 1101 [Concomitant]
  4. METHOTREXTE 15MG INTRATHECALLY AT 1031 [Concomitant]
  5. ZOFRAN 4MG IV AT 1006 [Concomitant]
  6. ATIVAN 1MG IV AT 1007 [Concomitant]

REACTIONS (3)
  - Product lot number issue [None]
  - Muscle twitching [None]
  - Dyskinesia [None]

NARRATIVE: CASE EVENT DATE: 20190520
